FAERS Safety Report 12774913 (Version 1)
Quarter: 2016Q3

REPORT INFORMATION
  Report Type: Spontaneous
  Country: US (occurrence: US)
  Receive Date: 20160923
  Receipt Date: 20160923
  Transmission Date: 20161109
  Serious: No
  Sender: FDA-Public Use
  Company Number: US-PFIZER INC-2016440591

PATIENT
  Age: 42 Year
  Sex: Female

DRUGS (3)
  1. LETROZOLE. [Concomitant]
     Active Substance: LETROZOLE
     Dosage: UNK
  2. PANTOPRAZOLE SODIUM. [Concomitant]
     Active Substance: PANTOPRAZOLE SODIUM
     Dosage: UNK
  3. IBRANCE [Suspect]
     Active Substance: PALBOCICLIB
     Indication: BREAST CANCER FEMALE
     Dosage: 125 MG, CYCLIC (1QD X 21 DAYS, 7 DAYS OFF/WITH FOOD ON DAYS 1 THROUGH 21 FOLLOWED BY 7 DAYS OFF)
     Route: 048

REACTIONS (5)
  - Stomatitis [Unknown]
  - Pain [Unknown]
  - Alopecia [Unknown]
  - Blood count abnormal [Unknown]
  - Hypoaesthesia [Unknown]
